FAERS Safety Report 7515481-4 (Version None)
Quarter: 2011Q2

REPORT INFORMATION
  Report Type: 
  Country: None (occurrence: None)
  Receive Date: 20110601
  Receipt Date: 20100628
  Transmission Date: 20111010
  Serious: No
  Sender: FDA-Public Use
  Company Number: US-PFIZER INC-2010045725

PATIENT
  Sex: Male
  Weight: 88 kg

DRUGS (12)
  1. HYDROCODONE [Concomitant]
     Indication: PAIN
     Dosage: UNK
  2. MORPHINE [Concomitant]
     Dosage: UNK
  3. LISINOPRIL [Concomitant]
     Indication: HYPERTENSION
     Dosage: UNK
  4. CARBAMAZEPINE [Concomitant]
     Indication: NEUROPATHY PERIPHERAL
     Dosage: UNK
  5. AMLODIPINE [Concomitant]
     Indication: HYPERTENSION
     Dosage: UNK
  6. ATENOLOL [Concomitant]
     Indication: HYPERTENSION
     Dosage: UNK
  7. GABAPENTIN [Concomitant]
     Indication: NEUROPATHY PERIPHERAL
     Dosage: UNK
  8. LEVOTHYROXINE [Concomitant]
     Indication: THYROID FUNCTION TEST ABNORMAL
     Dosage: UNK
  9. CHANTIX [Suspect]
     Indication: SMOKING CESSATION THERAPY
     Dosage: UNK
     Route: 048
     Dates: start: 20100329
  10. MORPHINE [Concomitant]
     Indication: PAIN
     Dosage: UNK
  11. TIZANIDINE [Concomitant]
     Dosage: UNK
  12. HYDROMORPHONE [Concomitant]
     Indication: PAIN
     Dosage: UNK

REACTIONS (2)
  - DRUG INEFFECTIVE [None]
  - BACK PAIN [None]
